FAERS Safety Report 7530720-1 (Version None)
Quarter: 2011Q2

REPORT INFORMATION
  Report Type: 
  Country: None (occurrence: None)
  Receive Date: 20110607
  Receipt Date: 20110606
  Transmission Date: 20111010
  Serious: Yes (Other)
  Sender: FDA-Public Use
  Company Number: GB-PFIZER INC-2011123123

PATIENT
  Age: 50 Year
  Sex: Male

DRUGS (1)
  1. VARENICLINE TARTRATE [Suspect]
     Indication: SMOKING CESSATION THERAPY
     Dosage: 1 DF, 1X/DAY

REACTIONS (16)
  - HALLUCINATION [None]
  - MORBID THOUGHTS [None]
  - HOT FLUSH [None]
  - SPEECH DISORDER [None]
  - THROAT TIGHTNESS [None]
  - DISTURBANCE IN ATTENTION [None]
  - MOOD SWINGS [None]
  - FATIGUE [None]
  - DEPRESSED MOOD [None]
  - AMNESIA [None]
  - PANIC ATTACK [None]
  - NIGHT SWEATS [None]
  - RESTLESSNESS [None]
  - NIGHTMARE [None]
  - LETHARGY [None]
  - CHEST DISCOMFORT [None]
